FAERS Safety Report 10592499 (Version 3)
Quarter: 2015Q1

REPORT INFORMATION
  Report Type: Spontaneous
  Country: US (occurrence: None)
  Receive Date: 20141117
  Receipt Date: 20150302
  Transmission Date: 20150720
  Serious: Yes (Death, Life-Threatening, Disabling)
  Sender: FDA-Public Use
  Company Number: US-MDCO-14-00287

PATIENT
  Age: 67 Year
  Sex: Male
  Weight: 86.6 kg

DRUGS (6)
  1. HEPARIN [Concomitant]
     Active Substance: HEPARIN SODIUM
  2. PLAVIX (CLOPIDOGREL BISULFATE) [Concomitant]
  3. EPITIFIBATIDE [Concomitant]
  4. ANGIOMAX [Suspect]
     Active Substance: BIVALIRUDIN
     Indication: CORONARY ANGIOPLASTY
     Dosage: STANDARD DOSE, INTRAVENOUS BOLUS?
     Route: 040
  5. BRILINTA [Concomitant]
     Active Substance: TICAGRELOR
  6. ASPIRIN (ACETYLSALICYLIC ACID) [Concomitant]
     Active Substance: ASPIRIN

REACTIONS (5)
  - Myocardial infarction [None]
  - Product quality issue [None]
  - Coronary artery thrombosis [None]
  - Thrombosis in device [None]
  - Thrombosis [None]

NARRATIVE: CASE EVENT DATE: 20141031
